FAERS Safety Report 5211987-1 (Version None)
Quarter: 2007Q1

REPORT INFORMATION
  Report Type: 
  Country: None (occurrence: None)
  Receive Date: 20070116
  Receipt Date: 20070116
  Transmission Date: 20070707
  Serious: Yes (Hospitalization)
  Sender: FDA-Public Use
  Company Number: None

PATIENT
  Age: 74 Year
  Sex: Male
  Weight: 77.5651 kg

DRUGS (1)
  1. CARDIZEM [Suspect]

REACTIONS (3)
  - INCORRECT DOSE ADMINISTERED [None]
  - REFUSAL OF TREATMENT BY PATIENT [None]
  - SINUS BRADYCARDIA [None]
